FAERS Safety Report 5034334-7 (Version None)
Quarter: 2006Q2

REPORT INFORMATION
  Report Type: 
  Country: None (occurrence: None)
  Receive Date: 20060626
  Receipt Date: 19980130
  Transmission Date: 20061013
  Serious: Yes (Hospitalization)
  Sender: FDA-Public Use
  Company Number: US-ROCHE-94102

PATIENT
  Age: 29 Year
  Sex: Male
  Weight: 67.1 kg

DRUGS (2)
  1. ACCUTANE [Suspect]
     Route: 048
     Dates: start: 19890615, end: 19890615
  2. ACCUTANE [Suspect]
     Route: 048
     Dates: start: 19890615, end: 19890615

REACTIONS (38)
  - ABDOMINAL PAIN [None]
  - ACNE [None]
  - ALOPECIA [None]
  - ANAL FISTULA [None]
  - ARTHRALGIA [None]
  - BACK PAIN [None]
  - BLOOD CHOLESTEROL INCREASED [None]
  - BONE PAIN [None]
  - CONTUSION [None]
  - COORDINATION ABNORMAL [None]
  - DRY EYE [None]
  - DRY SKIN [None]
  - DUODENAL ULCER [None]
  - EPISTAXIS [None]
  - EYE PAIN [None]
  - FATIGUE [None]
  - GINGIVAL PAIN [None]
  - HAIR TEXTURE ABNORMAL [None]
  - HERPES SIMPLEX [None]
  - HYPERHIDROSIS [None]
  - INTERVERTEBRAL DISC PROTRUSION [None]
  - LOW DENSITY LIPOPROTEIN INCREASED [None]
  - MENISCUS LESION [None]
  - MUCOSAL DRYNESS [None]
  - MUSCLE SPASMS [None]
  - MUSCULOSKELETAL CHEST PAIN [None]
  - NIGHT SWEATS [None]
  - ONYCHOCLASIS [None]
  - ORAL MUCOSAL EXFOLIATION [None]
  - OSTEOPENIA [None]
  - PAIN IN EXTREMITY [None]
  - PRURITUS [None]
  - RASH [None]
  - RECTAL HAEMORRHAGE [None]
  - SNEEZING [None]
  - SPINAL CORD DISORDER [None]
  - VISION BLURRED [None]
  - VITAMIN A DEFICIENCY [None]
